FAERS Safety Report 25599529 (Version 1)
Quarter: 2025Q3

REPORT INFORMATION
  Report Type: Spontaneous
  Country: US (occurrence: US)
  Receive Date: 20250724
  Receipt Date: 20250724
  Transmission Date: 20251021
  Serious: No
  Sender: ACCORD
  Company Number: US-Accord-486146

PATIENT
  Sex: Female

DRUGS (1)
  1. LETROZOLE [Suspect]
     Active Substance: LETROZOLE
     Indication: Product used for unknown indication

REACTIONS (1)
  - Brain fog [Unknown]
